FAERS Safety Report 5983823-7 (Version None)
Quarter: 2008Q4

REPORT INFORMATION
  Report Type: 
  Country: None (occurrence: None)
  Receive Date: 20081208
  Receipt Date: 20081204
  Transmission Date: 20090506
  Serious: Yes (Hospitalization, Other)
  Sender: FDA-Public Use
  Company Number: GB-BRISTOL-MYERS SQUIBB COMPANY-14391189

PATIENT
  Age: 71 Year
  Sex: Female

DRUGS (2)
  1. TRIAMCINOLONE ACETONIDE [Suspect]
     Indication: NERVE ROOT COMPRESSION
     Dosage: NERVE ROOT INJECTION
     Route: 008
  2. BUPIVACAINE HCL [Suspect]
     Indication: NERVE ROOT COMPRESSION
     Dosage: LOCAL INJECTION OF 1 ML 0.5% BUPIVACAINE
     Route: 008

REACTIONS (3)
  - ABDOMINAL PAIN [None]
  - NAUSEA [None]
  - SPINAL CORD INFARCTION [None]
